FAERS Safety Report 7112265-6 (Version None)
Quarter: 2010Q4

REPORT INFORMATION
  Report Type: 
  Country: None (occurrence: None)
  Receive Date: 20101119
  Receipt Date: 20100511
  Transmission Date: 20110411
  Serious: No
  Sender: FDA-Public Use
  Company Number: A0859137A

PATIENT
  Age: 66 Year
  Sex: Male

DRUGS (5)
  1. AVODART [Suspect]
     Indication: BENIGN PROSTATIC HYPERPLASIA
     Dosage: .5MG PER DAY
     Route: 048
     Dates: start: 20100510
  2. ZOCOR [Concomitant]
  3. DIAPAM [Concomitant]
  4. FLOMAX [Concomitant]
  5. AMITRIPTYLINE HCL [Concomitant]

REACTIONS (2)
  - DYSGEUSIA [None]
  - ILL-DEFINED DISORDER [None]
